FAERS Safety Report 22960484 (Version 5)
Quarter: 2023Q4

REPORT INFORMATION
  Report Type: Report from Study
  Country: JP (occurrence: JP)
  Receive Date: 20230920
  Receipt Date: 20231011
  Transmission Date: 20240110
  Serious: No
  Sender: FDA-Public Use
  Company Number: JP-JNJFOC-20230558888

PATIENT
  Age: 73 Year
  Sex: Female
  Weight: 43.9 kg

DRUGS (23)
  1. DARATUMUMAB [Suspect]
     Active Substance: DARATUMUMAB
     Indication: Plasma cell myeloma
     Route: 058
     Dates: start: 20221004, end: 20221004
  2. DARATUMUMAB [Suspect]
     Active Substance: DARATUMUMAB
     Route: 058
     Dates: start: 20221011, end: 20221011
  3. DARATUMUMAB [Suspect]
     Active Substance: DARATUMUMAB
     Route: 058
     Dates: start: 20221018, end: 20221018
  4. DARATUMUMAB [Suspect]
     Active Substance: DARATUMUMAB
     Route: 058
     Dates: start: 20221028, end: 20221028
  5. DARATUMUMAB [Suspect]
     Active Substance: DARATUMUMAB
     Route: 058
     Dates: start: 20221104, end: 20221104
  6. DARATUMUMAB [Suspect]
     Active Substance: DARATUMUMAB
     Route: 058
     Dates: start: 20221111, end: 20221111
  7. DARATUMUMAB [Suspect]
     Active Substance: DARATUMUMAB
     Route: 058
     Dates: start: 20221125, end: 20221125
  8. DARATUMUMAB [Suspect]
     Active Substance: DARATUMUMAB
     Route: 058
     Dates: start: 20221202, end: 20221202
  9. DARATUMUMAB [Suspect]
     Active Substance: DARATUMUMAB
     Route: 058
     Dates: start: 20221209, end: 20221209
  10. DARATUMUMAB [Suspect]
     Active Substance: DARATUMUMAB
     Route: 058
     Dates: start: 20221223, end: 20221223
  11. DARATUMUMAB [Suspect]
     Active Substance: DARATUMUMAB
     Route: 058
     Dates: start: 20230113, end: 20230113
  12. DARATUMUMAB [Suspect]
     Active Substance: DARATUMUMAB
     Route: 058
     Dates: start: 20230203, end: 20230203
  13. DARATUMUMAB [Suspect]
     Active Substance: DARATUMUMAB
     Route: 058
     Dates: start: 20230228, end: 20230228
  14. DARATUMUMAB [Suspect]
     Active Substance: DARATUMUMAB
     Route: 058
     Dates: start: 20230331, end: 20230331
  15. DARATUMUMAB [Suspect]
     Active Substance: DARATUMUMAB
     Route: 058
     Dates: start: 20230428, end: 20230428
  16. DARATUMUMAB [Suspect]
     Active Substance: DARATUMUMAB
     Route: 058
     Dates: start: 20230526, end: 20230526
  17. DARATUMUMAB [Suspect]
     Active Substance: DARATUMUMAB
     Route: 058
     Dates: start: 20230623, end: 20230623
  18. DARATUMUMAB [Suspect]
     Active Substance: DARATUMUMAB
     Route: 058
     Dates: start: 20230721, end: 20230721
  19. DARATUMUMAB [Suspect]
     Active Substance: DARATUMUMAB
     Route: 058
     Dates: start: 20230818, end: 20230818
  20. DARATUMUMAB [Suspect]
     Active Substance: DARATUMUMAB
     Route: 058
     Dates: start: 20230915, end: 20230915
  21. VELCADE [Suspect]
     Active Substance: BORTEZOMIB
     Indication: Plasma cell myeloma
     Dosage: DOSE UNKNOWN
     Route: 065
  22. DEXAMETHASONE [Concomitant]
     Active Substance: DEXAMETHASONE
     Indication: Plasma cell myeloma
     Dosage: DOSE UNKNOWN
     Route: 065
  23. BILASTINE [Concomitant]
     Active Substance: BILASTINE
     Indication: Rash
     Route: 065
     Dates: start: 20221028

REACTIONS (2)
  - Rash [Recovering/Resolving]
  - Tooth disorder [Recovering/Resolving]

NARRATIVE: CASE EVENT DATE: 20221001
